FAERS Safety Report 10254273 (Version 2)
Quarter: 2014Q4

REPORT INFORMATION
  Report Type: Report from Study
  Country: AU (occurrence: AU)
  Receive Date: 20140624
  Receipt Date: 20141201
  Transmission Date: 20150528
  Serious: Yes (Other)
  Sender: FDA-Public Use
  Company Number: AU-ROCHE-1419176

PATIENT

DRUGS (2)
  1. RITUXIMAB [Suspect]
     Active Substance: RITUXIMAB
     Indication: AUTOIMMUNE DISORDER
     Dosage: TWO DOSES
     Route: 042
  2. RITUXIMAB [Suspect]
     Active Substance: RITUXIMAB
     Indication: CENTRAL NERVOUS SYSTEM INFLAMMATION
     Dosage: FOUR DOSES
     Route: 042

REACTIONS (27)
  - Tachycardia [Unknown]
  - Bradycardia [Unknown]
  - Bronchiectasis [Unknown]
  - B-lymphocyte count decreased [Unknown]
  - Hypogammaglobulinaemia [Unknown]
  - Blood immunoglobulin G decreased [Unknown]
  - Hypertension [Unknown]
  - Panic attack [Unknown]
  - Pneumonia [Unknown]
  - Mastoiditis [Unknown]
  - Lymphopenia [Unknown]
  - Chest pain [Unknown]
  - Blood immunoglobulin M decreased [Unknown]
  - Hypotension [Unknown]
  - Tremor [Unknown]
  - Gastroenteritis salmonella [Unknown]
  - Blood immunoglobulin A decreased [Unknown]
  - Rash [Unknown]
  - Clostridium difficile colitis [Unknown]
  - Pyrexia [Unknown]
  - Influenza like illness [Unknown]
  - Anaemia [Unknown]
  - Thrombocytopenia [Unknown]
  - Swelling face [Unknown]
  - Empyema [Unknown]
  - Neutropenia [Unknown]
  - Headache [Unknown]
